FAERS Safety Report 4767666-8 (Version None)
Quarter: 2005Q3

REPORT INFORMATION
  Report Type: 
  Country: None (occurrence: None)
  Receive Date: 20050913
  Receipt Date: 20050909
  Transmission Date: 20060218
  Serious: Yes (Hospitalization)
  Sender: FDA-Public Use
  Company Number: 2005UW13342

PATIENT
  Age: 65 Year
  Sex: Male
  Weight: 136.4 kg

DRUGS (6)
  1. TOPROL-XL [Suspect]
     Route: 048
  2. AMLODIPINE/BENAZEPRIL [Concomitant]
  3. VALSARTAN/HYDROCHLOROTHIAZIDE [Concomitant]
  4. GABAPENTIN [Concomitant]
  5. LEVOTHYROXINE SODIUM [Concomitant]
  6. ATORVASTATIN CALCIUM [Concomitant]

REACTIONS (2)
  - ATRIAL FIBRILLATION [None]
  - DRUG INTERACTION [None]
